FAERS Safety Report 4899099-8 (Version None)
Quarter: 2006Q1

REPORT INFORMATION
  Report Type: 
  Country: None (occurrence: None)
  Receive Date: 20060202
  Receipt Date: 20060109
  Transmission Date: 20060701
  Serious: Yes (Other)
  Sender: FDA-Public Use
  Company Number: PHEH2006US00704

PATIENT
  Age: 79 Year
  Sex: Female

DRUGS (2)
  1. ZOMETA [Suspect]
     Indication: BREAST CANCER METASTATIC
     Dosage: UNK UKN, QMO
     Dates: start: 20040101, end: 20051201
  2. FASLODEX [Concomitant]
     Dosage: UNK UKN, UNK
     Route: 065

REACTIONS (11)
  - ARTIFICIAL CROWN PROCEDURE [None]
  - BONE DISORDER [None]
  - FACE AND MOUTH X-RAY ABNORMAL [None]
  - OEDEMA MUCOSAL [None]
  - ORAL DISCOMFORT [None]
  - OSTEONECROSIS [None]
  - PERIODONTAL INFECTION [None]
  - SOFT TISSUE INFECTION [None]
  - STOMATITIS [None]
  - TOOTH ABSCESS [None]
  - TOOTHACHE [None]
